FAERS Safety Report 5323514-9 (Version None)
Quarter: 2007Q2

REPORT INFORMATION
  Report Type: 
  Country: None (occurrence: None)
  Receive Date: 20070514
  Receipt Date: 20070504
  Transmission Date: 20071010
  Serious: Yes (Other)
  Sender: FDA-Public Use
  Company Number: PHBS2007NO07765

PATIENT
  Age: 57 Year
  Sex: Female

DRUGS (5)
  1. ZOMETA [Suspect]
     Indication: MULTIPLE MYELOMA
     Dosage: 4 MG/4 TIMES PER WEEK
     Route: 041
     Dates: start: 20050101
  2. EFFEXOR [Concomitant]
  3. PARACET [Concomitant]
  4. SOBRIL [Concomitant]
     Dosage: UNK, PRN
  5. DURAGESIC-100 [Concomitant]
     Route: 062

REACTIONS (3)
  - OSTEONECROSIS [None]
  - PAIN IN JAW [None]
  - TOOTH EXTRACTION [None]
